FAERS Safety Report 9981754 (Version 2)
Quarter: 2014Q1

REPORT INFORMATION
  Report Type: Report from Study
  Country: US (occurrence: US)
  Receive Date: 20140307
  Receipt Date: 20140307
  Transmission Date: 20141002
  Serious: No
  Sender: FDA-Public Use
  Company Number: US-ABBVIE-13P-163-1175251-00

PATIENT
  Sex: Female

DRUGS (15)
  1. HUMIRA [Suspect]
     Indication: CROHN^S DISEASE
     Dates: start: 20130920
  2. PLAVIX [Concomitant]
  3. LLSINOPRIL [Concomitant]
  4. METOPROLOL [Concomitant]
     Dosage: 1/2 TAB
  5. ATORVASTATIN [Concomitant]
     Indication: BLOOD CHOLESTEROL
  6. LEVOTHYROXINE [Concomitant]
     Indication: THYROID DISORDER
  7. DEXILANT [Concomitant]
     Indication: GASTRIC DISORDER
  8. BIOTIN [Concomitant]
     Indication: NAIL DISORDER
  9. CALCIUM [Concomitant]
  10. VIT D [Concomitant]
  11. ZOLPIDEM [Concomitant]
     Indication: INSOMNIA
  12. PRUNE JUICE [Concomitant]
  13. MIRALAX [Concomitant]
  14. HYDROCODONE APAP [Concomitant]
     Indication: PAIN
     Dosage: 10/325 MG
  15. ASA [Concomitant]

REACTIONS (4)
  - Rash [Unknown]
  - Pain [Recovering/Resolving]
  - Rash erythematous [Recovering/Resolving]
  - Neck pain [Recovering/Resolving]
